FAERS Safety Report 5736910-2 (Version None)
Quarter: 2008Q2

REPORT INFORMATION
  Report Type: 
  Country: None (occurrence: None)
  Receive Date: 20080509
  Receipt Date: 20080428
  Transmission Date: 20081010
  Serious: Yes (Other)
  Sender: FDA-Public Use
  Company Number: PHBS2007JP11878

PATIENT
  Age: 62 Year
  Sex: Male
  Weight: 64 kg

DRUGS (5)
  1. LAMISIL [Suspect]
     Indication: TINEA PEDIS
     Dosage: TOPICAL
     Route: 061
     Dates: start: 20070629, end: 20070708
  2. LAMISIL [Concomitant]
  3. BANAN [Concomitant]
  4. ALLEGRA [Concomitant]
  5. MYSER (DIFLUPREDNATE) [Concomitant]

REACTIONS (5)
  - DERMATITIS [None]
  - DERMATITIS CONTACT [None]
  - DRUG ERUPTION [None]
  - PURPURA [None]
  - WOUND SECRETION [None]
